FAERS Safety Report 7384050-1 (Version None)
Quarter: 2011Q1

REPORT INFORMATION
  Report Type: 
  Country: None (occurrence: None)
  Receive Date: 20110330
  Receipt Date: 20110318
  Transmission Date: 20110831
  Serious: Yes (Hospitalization)
  Sender: FDA-Public Use
  Company Number: PHHY2011JP12997

PATIENT
  Age: 47 Year
  Sex: Male

DRUGS (2)
  1. FLUOROURACIL [Suspect]
     Dosage: 600 MG/M2, FOR ONE AND HALF YEARS
  2. CARBOPLATIN [Suspect]
     Dosage: 180 MG/M2, FOR ONE AND HALF YEARS
     Route: 042

REACTIONS (3)
  - HEMIANOPIA [None]
  - BRAIN ABSCESS [None]
  - DECREASED APPETITE [None]
